FAERS Safety Report 7321104-X (Version None)
Quarter: 2011Q1

REPORT INFORMATION
  Report Type: 
  Country: None (occurrence: None)
  Receive Date: 20110228
  Receipt Date: 20110218
  Transmission Date: 20110831
  Serious: No
  Sender: FDA-Public Use
  Company Number: US-JNJFOC-20110206181

PATIENT
  Sex: Female
  Weight: 72.58 kg

DRUGS (8)
  1. NASONEX [Concomitant]
     Indication: MULTIPLE ALLERGIES
     Route: 055
  2. NEXIUM [Concomitant]
     Indication: GASTROOESOPHAGEAL REFLUX DISEASE
     Route: 048
  3. ALLEGRA [Concomitant]
     Indication: MULTIPLE ALLERGIES
     Route: 048
  4. TOPROL-XL [Concomitant]
     Indication: HYPERTENSION
     Route: 048
  5. LOTREL [Concomitant]
     Indication: HYPERTENSION
     Dosage: 5/10 MG CAPSULES
     Route: 048
  6. CYTOMEL [Concomitant]
     Indication: THYROID CANCER
     Route: 048
  7. FENTANYL-100 [Suspect]
     Indication: THYROID CANCER
     Route: 062
  8. CALCIUM [Concomitant]
     Indication: THYROID CANCER
     Route: 048

REACTIONS (4)
  - VOMITING [None]
  - DIZZINESS [None]
  - EXPIRED DRUG ADMINISTERED [None]
  - NAUSEA [None]
